APPROVED DRUG PRODUCT: DISOPYRAMIDE PHOSPHATE
Active Ingredient: DISOPYRAMIDE PHOSPHATE
Strength: EQ 150MG BASE
Dosage Form/Route: CAPSULE, EXTENDED RELEASE;ORAL
Application: A071200 | Product #001
Applicant: NESHER PHARMACEUTICALS USA LLC
Approved: Dec 15, 1987 | RLD: No | RS: No | Type: DISCN